FAERS Safety Report 25352095 (Version 4)
Quarter: 2025Q3

REPORT INFORMATION
  Report Type: Spontaneous
  Country: JP (occurrence: JP)
  Receive Date: 20250523
  Receipt Date: 20250802
  Transmission Date: 20251020
  Serious: Yes (Other)
  Sender: ALEXION PHARMACEUTICALS
  Company Number: JP-ASTRAZENECA-250045654_063010_P_1

PATIENT
  Age: 24 Year
  Sex: Male
  Weight: 38 kg

DRUGS (23)
  1. DAPAGLIFLOZIN [Suspect]
     Active Substance: DAPAGLIFLOZIN
     Indication: Steroid diabetes
     Dosage: PULVERIZED
     Route: 050
     Dates: start: 20250414, end: 20250423
  2. DAPAGLIFLOZIN [Suspect]
     Active Substance: DAPAGLIFLOZIN
     Dosage: PULVERIZED
     Route: 050
     Dates: start: 20250424, end: 20250506
  3. DAPAGLIFLOZIN [Suspect]
     Active Substance: DAPAGLIFLOZIN
     Dosage: PULVERIZED
     Route: 050
     Dates: start: 20250510, end: 20250513
  4. ESOMEPRAZOLE [Concomitant]
     Active Substance: ESOMEPRAZOLE
     Indication: Microangiopathy
     Dosage: 20 MILLIGRAM, QD
     Route: 050
  5. SODIUM PHOSPHATE, DIBASIC\SODIUM PHOSPHATE, MONOBASIC [Concomitant]
     Active Substance: SODIUM PHOSPHATE, DIBASIC\SODIUM PHOSPHATE, MONOBASIC
     Indication: Microangiopathy
     Dosage: 100 MILLIGRAM, TID
     Route: 050
  6. Marzulene [Concomitant]
     Indication: Microangiopathy
     Dosage: 0.5 GRAM, BID
     Route: 050
  7. CALCIUM LACTATE [Concomitant]
     Active Substance: CALCIUM LACTATE
     Indication: Microangiopathy
     Dosage: 0.5 GRAM, BID
     Route: 050
  8. MIYA-BM [Concomitant]
     Active Substance: CLOSTRIDIUM BUTYRICUM SPORES STRAIN M-55
     Indication: Microangiopathy
     Route: 050
  9. CARBOCYSTEINE [Concomitant]
     Active Substance: CARBOCYSTEINE
     Indication: Complications of transplanted lung
     Dosage: 450 MILLIGRAM, BID
     Route: 050
  10. Mucosal [Concomitant]
     Indication: Complications of transplanted lung
     Dosage: 14 MILLIGRAM, BID
     Route: 050
  11. Mucosal [Concomitant]
     Route: 050
  12. TRESIBA [Concomitant]
     Active Substance: INSULIN DEGLUDEC
     Indication: Steroid diabetes
     Dosage: 53 INTERNATIONAL UNIT, QD
     Dates: start: 202207
  13. HUMALOG [Concomitant]
     Active Substance: INSULIN LISPRO
     Indication: Steroid diabetes
  14. PREDNISOLONE [Concomitant]
     Active Substance: PREDNISOLONE
     Indication: Stem cell transplant
     Dosage: 3 MILLIGRAM, QD
     Route: 050
  15. CELLCEPT [Concomitant]
     Active Substance: MYCOPHENOLATE MOFETIL
     Indication: Stem cell transplant
     Dosage: DE-CAPSULED
     Route: 050
  16. PROGRAF [Concomitant]
     Active Substance: TACROLIMUS
     Indication: Stem cell transplant
     Dosage: 0.3 MILLIGRAM, BID
     Route: 050
  17. SULFAMETHOXAZOLE\TRIMETHOPRIM [Concomitant]
     Active Substance: SULFAMETHOXAZOLE\TRIMETHOPRIM
     Indication: Stem cell transplant
     Dosage: 80 MILLIGRAM, QOD
     Route: 050
  18. ITRACONAZOLE [Concomitant]
     Active Substance: ITRACONAZOLE
     Indication: Stem cell transplant
     Dosage: 15 MILLILITER, QD
     Route: 050
  19. VALGANCICLOVIR HYDROCHLORIDE [Concomitant]
     Active Substance: VALGANCICLOVIR HYDROCHLORIDE
     Indication: Stem cell transplant
     Dosage: 9 MILLILITER, QOD
     Route: 050
  20. AMLODIPINE [Concomitant]
     Active Substance: AMLODIPINE BESYLATE
     Indication: Hypertension
     Dosage: 2.5 MILLIGRAM, QD
     Route: 050
  21. ICOSAPENT ETHYL [Concomitant]
     Active Substance: ICOSAPENT ETHYL
     Indication: Hyperlipidaemia
     Dosage: 1 DOSAGE FORM, BID
     Route: 050
  22. URSO [Concomitant]
     Active Substance: URSODIOL
     Indication: Liver disorder
     Dosage: 75 MILLIGRAM, BID
     Route: 050
  23. BIFIDOBACTERIUM SPP. [Concomitant]
     Active Substance: BIFIDOBACTERIUM SPP.
     Indication: Microangiopathy
     Dosage: 1 GRAM, QD
     Route: 050

REACTIONS (2)
  - Tremor [Recovered/Resolved]
  - Off label use [Unknown]

NARRATIVE: CASE EVENT DATE: 20250415
